FAERS Safety Report 8413277-2 (Version None)
Quarter: 2012Q2

REPORT INFORMATION
  Report Type: 
  Country: None (occurrence: None)
  Receive Date: 20120605
  Receipt Date: 20120530
  Transmission Date: 20120825
  Serious: Yes (Hospitalization, Other)
  Sender: FDA-Public Use
  Company Number: PHEH2012US011044

PATIENT
  Sex: Female

DRUGS (14)
  1. DIOVAN [Suspect]
     Dosage: 40 MG, QD
  2. PLAVIX [Concomitant]
     Dosage: UNK UKN, UNK
  3. NEURONTIN [Concomitant]
     Dosage: 300 MG, TID
  4. LASIX [Concomitant]
     Dosage: UNK UKN, UNK
  5. ISOSORB [Concomitant]
     Dosage: UNK UKN, UNK
  6. ACIDOPHILUS [Concomitant]
     Dosage: UNK UKN, UNK
  7. NEPHROCAPS [Concomitant]
     Dosage: UNK UKN, UNK
  8. CALCIUM [Concomitant]
     Dosage: UNK UKN, UNK
  9. FOLIC ACID [Concomitant]
     Dosage: UNK UKN, UNK
  10. LIPITOR [Concomitant]
     Dosage: UNK UKN, UNK
  11. ATENOLOL [Concomitant]
     Dosage: 25 MG, QD
  12. DIGOXIN [Concomitant]
     Dosage: UNK UKN, UNK
  13. PRILOSEC [Concomitant]
     Dosage: UNK UKN, UNK
  14. APIDRA [Concomitant]
     Dosage: UNK UKN, UNK

REACTIONS (4)
  - FALL [None]
  - MUSCLE STRAIN [None]
  - DYSPNOEA [None]
  - ARTERIAL OCCLUSIVE DISEASE [None]
